FAERS Safety Report 7259032-0 (Version None)
Quarter: 2011Q1

REPORT INFORMATION
  Report Type: 
  Country: None (occurrence: None)
  Receive Date: 20110129
  Receipt Date: 20100716
  Transmission Date: 20110831
  Serious: No
  Sender: FDA-Public Use
  Company Number: US-ABBOTT-10P-163-0658225-00

PATIENT
  Sex: Female

DRUGS (4)
  1. TRAZODONE [Concomitant]
     Indication: INSOMNIA
     Dosage: NIGHTLY
  2. SEVERAL VITAMINS [Concomitant]
     Indication: PRODUCT USED FOR UNKNOWN INDICATION
  3. COMPOUNDED T-3/T-4 [Concomitant]
     Indication: THYROID DISORDER
  4. HUMIRA [Suspect]
     Indication: ANKYLOSING SPONDYLITIS

REACTIONS (1)
  - ALOPECIA [None]
